FAERS Safety Report 11290985 (Version 1)
Quarter: 2015Q3

REPORT INFORMATION
  Report Type: Spontaneous
  Country: US (occurrence: None)
  Receive Date: 20150720
  Receipt Date: 20150720
  Transmission Date: 20151125
  Serious: Yes (Other)
  Sender: FDA-Public Use
  Company Number: TPU2015-00350

PATIENT
  Age: 61 Year
  Sex: Female
  Weight: 81.65 kg

DRUGS (4)
  1. XANAX [Concomitant]
     Active Substance: ALPRAZOLAM
  2. LIDODERM [Suspect]
     Active Substance: LIDOCAINE
     Indication: BACK PAIN
     Dosage: AS REQUIRED, TOPICAL
     Route: 061
  3. LIDOCAINE PATCH [Suspect]
     Active Substance: LIDOCAINE
     Indication: BACK PAIN
     Dosage: AS REQUIRED, TOPICAL
     Route: 061
  4. NORCO (VICODIN) [Concomitant]

REACTIONS (3)
  - Product adhesion issue [None]
  - Spinal nerve stimulator implantation [None]
  - Spinal fusion surgery [None]

NARRATIVE: CASE EVENT DATE: 2012
